FAERS Safety Report 5378512-6 (Version None)
Quarter: 2007Q3

REPORT INFORMATION
  Report Type: 
  Country: None (occurrence: None)
  Receive Date: 20070705
  Receipt Date: 20070629
  Transmission Date: 20080115
  Serious: Yes (Hospitalization)
  Sender: FDA-Public Use
  Company Number: FR-BAYER-200710029BFR

PATIENT
  Age: 76 Year
  Sex: Female

DRUGS (4)
  1. CIFLOX [Suspect]
     Indication: PROPHYLAXIS
     Dosage: TOTAL DAILY DOSE: 1 G  UNIT DOSE: 500 MG
     Route: 048
     Dates: start: 20061206, end: 20061214
  2. ZOLPIDEM TARTRATE [Concomitant]
     Indication: UNEVALUABLE EVENT
     Route: 065
  3. EQUANIL [Concomitant]
     Indication: UNEVALUABLE EVENT
     Route: 065
  4. ATORVASTATIN CALCIUM [Concomitant]
     Indication: UNEVALUABLE EVENT
     Route: 065

REACTIONS (5)
  - DRUG RASH WITH EOSINOPHILIA AND SYSTEMIC SYMPTOMS [None]
  - EOSINOPHILIA [None]
  - HEPATITIS [None]
  - PYREXIA [None]
  - RASH MACULO-PAPULAR [None]
